FAERS Safety Report 6283950-3 (Version None)
Quarter: 2009Q3

REPORT INFORMATION
  Report Type: 
  Country: None (occurrence: None)
  Receive Date: 20090723
  Receipt Date: 20090723
  Transmission Date: 20100115
  Serious: No
  Sender: FDA-Public Use
  Company Number: None

PATIENT
  Age: 30 Year
  Sex: Female
  Weight: 74.8435 kg

DRUGS (1)
  1. ZICAM NASAL SPRAY MATRIX [Suspect]
     Indication: NASOPHARYNGITIS
     Dosage: 1-3 SPRAYS 3 TIMES NASAL
     Route: 045
     Dates: start: 20040110, end: 20040120

REACTIONS (2)
  - ANOSMIA [None]
  - HYPOGEUSIA [None]
